FAERS Safety Report 6107848-6 (Version None)
Quarter: 2009Q1

REPORT INFORMATION
  Report Type: 
  Country: None (occurrence: None)
  Receive Date: 20090305
  Receipt Date: 20090305
  Transmission Date: 20090719
  Serious: Yes (Hospitalization)
  Sender: FDA-Public Use
  Company Number: None

PATIENT
  Age: 70 Year
  Sex: Male
  Weight: 91 kg

DRUGS (21)
  1. WARFARIN SODIUM [Suspect]
     Indication: ATRIAL FIBRILLATION
     Dosage: 5MG SAT/SUN, 7.5 MG OTHER DAY DAILY PO, CHRONIC
     Route: 048
  2. ENOXAPARIN SODIUM [Suspect]
     Indication: ATRIAL FIBRILLATION
     Dosage: 90 MG Q 12 H SQ
     Route: 058
     Dates: start: 20090226, end: 20090228
  3. ACTOS [Concomitant]
  4. ASPIRIN [Concomitant]
  5. COREG [Concomitant]
  6. CENTRUM SILVER [Concomitant]
  7. WARFARIN SODIUM [Concomitant]
  8. BENEFIBER [Concomitant]
  9. VITAMIN B-12 [Concomitant]
  10. ZANTAC [Concomitant]
  11. FLOMAX [Concomitant]
  12. LASIX [Concomitant]
  13. GABAPENTIN [Concomitant]
  14. AMARYL [Concomitant]
  15. IRON [Concomitant]
  16. LOVAZA [Concomitant]
  17. METFORMIN HCL [Concomitant]
  18. VIT C [Concomitant]
  19. WELCHOL [Concomitant]
  20. ZETIA [Concomitant]
  21. TYLENOL [Concomitant]

REACTIONS (4)
  - GASTROINTESTINAL EROSION [None]
  - HAEMATOCRIT DECREASED [None]
  - HAEMOGLOBIN DECREASED [None]
  - UPPER GASTROINTESTINAL HAEMORRHAGE [None]
